FAERS Safety Report 7930221-2 (Version None)
Quarter: 2011Q4

REPORT INFORMATION
  Report Type: 
  Country: None (occurrence: None)
  Receive Date: 20111121
  Receipt Date: 20111109
  Transmission Date: 20120403
  Serious: No
  Sender: FDA-Public Use
  Company Number: US-B.I. PHARMACEUTICALS,INC./RIDGEFIELD-2011-BP-25986BP

PATIENT
  Sex: Female

DRUGS (12)
  1. EYE VITAMINS [Concomitant]
     Indication: SUPPLEMENTATION THERAPY
     Route: 048
  2. CARBIDOPA AND LEVODOPA [Concomitant]
     Indication: RESTLESS LEGS SYNDROME
     Route: 048
  3. FOLIC ACID [Concomitant]
     Indication: SUPPLEMENTATION THERAPY
     Route: 048
  4. PRADAXA [Suspect]
     Indication: ATRIAL FIBRILLATION
     Dosage: 300 MG
     Route: 048
     Dates: start: 20110201
  5. DIGOXIN [Concomitant]
     Indication: ATRIAL FIBRILLATION
     Route: 048
  6. FUROSEMIDE [Concomitant]
     Indication: PERICARDIAL EFFUSION
     Route: 048
  7. VITAMIN B-12 [Concomitant]
     Indication: SUPPLEMENTATION THERAPY
     Route: 048
  8. HORMONE REPLACEMENT [Concomitant]
     Indication: MENOPAUSE
     Dosage: 1.5 MG
  9. KLOR-CON [Concomitant]
     Indication: SUPPLEMENTATION THERAPY
     Route: 048
  10. CLARITHROMYCIN [Concomitant]
     Indication: HYPERSENSITIVITY
     Route: 048
  11. CALCIUM [Concomitant]
     Indication: SUPPLEMENTATION THERAPY
  12. DITILAZEM [Concomitant]
     Indication: HYPERTENSION
     Dosage: 140 MG
     Route: 048

REACTIONS (1)
  - ALOPECIA [None]
